FAERS Safety Report 5713685-4 (Version None)
Quarter: 2008Q2

REPORT INFORMATION
  Report Type: 
  Country: None (occurrence: None)
  Receive Date: 20080418
  Receipt Date: 20080407
  Transmission Date: 20081010
  Serious: Yes (Death)
  Sender: FDA-Public Use
  Company Number: 2008AP000821

PATIENT
  Age: 51 Year
  Sex: Female

DRUGS (8)
  1. CITALOPRAM HYDROBROMIDE [Suspect]
  2. NORTRIPTYLINE HCL [Suspect]
  3. TEMAZEPAM [Suspect]
  4. FENTANYL [Suspect]
     Route: 002
  5. METHADONE HCL [Suspect]
  6. DIPHENHYDRAMINE HCL [Suspect]
  7. DIAZEPAM [Concomitant]
  8. OXAZEPAM [Concomitant]

REACTIONS (6)
  - ACCIDENTAL DEATH [None]
  - ACCIDENTAL OVERDOSE [None]
  - DRUG ABUSE [None]
  - INCORRECT ROUTE OF DRUG ADMINISTRATION [None]
  - MULTIPLE DRUG OVERDOSE [None]
  - UNRESPONSIVE TO STIMULI [None]
